FAERS Safety Report 10874817 (Version 1)
Quarter: 2015Q1

REPORT INFORMATION
  Report Type: Spontaneous
  Country: US (occurrence: US)
  Receive Date: 20150227
  Receipt Date: 20150227
  Transmission Date: 20150721
  Serious: Yes (Death)
  Sender: FDA-Public Use
  Company Number: US-BANPHARM-20153517

PATIENT
  Age: 56 Year
  Sex: Male

DRUGS (2)
  1. CARBON MONOXIDE [Suspect]
     Active Substance: CARBON MONOXIDE
  2. DIPHENHYDRAMINE UNKNOWN PRODUCT [Suspect]
     Active Substance: DIPHENHYDRAMINE

REACTIONS (3)
  - Exposure via ingestion [None]
  - Exposure via inhalation [None]
  - Death [Fatal]
